FAERS Safety Report 12958692 (Version 7)
Quarter: 2018Q3

REPORT INFORMATION
  Report Type: Report from Study
  Country: None (occurrence: US)
  Receive Date: 20161121
  Receipt Date: 20180726
  Transmission Date: 20181010
  Serious: Yes (Hospitalization)
  Sender: FDA-Public Use
  Company Number: US-ABBVIE-16P-163-1781556-00

PATIENT
  Age: 15 Year
  Sex: Female

DRUGS (21)
  1. PREDNISONE. [Concomitant]
     Active Substance: PREDNISONE
     Route: 048
     Dates: start: 20160320, end: 20160425
  2. A?HYDROCORT [Concomitant]
     Active Substance: HYDROCORTISONE SODIUM SUCCINATE
     Indication: CROHN^S DISEASE
     Route: 054
     Dates: start: 20160426
  3. ZOLOFT [Concomitant]
     Active Substance: SERTRALINE HYDROCHLORIDE
     Indication: DEPRESSION
     Route: 048
     Dates: start: 20161010
  4. HUMIRA [Suspect]
     Active Substance: ADALIMUMAB
     Indication: CROHN^S DISEASE
     Dosage: INDUCTION DOSE
     Route: 058
     Dates: start: 20160430, end: 20160430
  5. FERROUS SULFATE. [Concomitant]
     Active Substance: FERROUS SULFATE
     Indication: IRON DEFICIENCY ANAEMIA
     Route: 048
     Dates: start: 20150423
  6. PREDNISONE. [Concomitant]
     Active Substance: PREDNISONE
     Route: 048
     Dates: start: 20160508, end: 20160523
  7. TYLENOL [Concomitant]
     Active Substance: ACETAMINOPHEN
     Indication: ANAL FISSURE
     Route: 048
     Dates: start: 20160429
  8. HUMIRA [Suspect]
     Active Substance: ADALIMUMAB
     Dosage: INDUCTION DOSE
     Route: 058
     Dates: start: 20160514, end: 20160514
  9. 6?MERCAPTOPURINE [Suspect]
     Active Substance: MERCAPTOPURINE
     Route: 048
     Dates: start: 20160129, end: 201602
  10. VITAMIN D [Concomitant]
     Active Substance: CHOLECALCIFEROL
     Indication: VITAMIN D DEFICIENCY
     Route: 048
     Dates: start: 20150405
  11. PANTOPRAZOLE [Concomitant]
     Active Substance: PANTOPRAZOLE
     Indication: CROHN^S DISEASE
     Route: 048
     Dates: start: 20150423
  12. 6?MERCAPTOPURINE [Suspect]
     Active Substance: MERCAPTOPURINE
     Indication: CROHN^S DISEASE
     Route: 048
     Dates: start: 20151105, end: 20160127
  13. CANASA [Concomitant]
     Active Substance: MESALAMINE
     Indication: CROHN^S DISEASE
     Route: 054
     Dates: start: 20150423
  14. REMICADE [Concomitant]
     Active Substance: INFLIXIMAB
     Indication: CROHN^S DISEASE
     Route: 041
     Dates: start: 20150619, end: 20151029
  15. HUMIRA [Suspect]
     Active Substance: ADALIMUMAB
     Route: 058
     Dates: start: 20160528, end: 20161012
  16. 6?MERCAPTOPURINE [Suspect]
     Active Substance: MERCAPTOPURINE
     Route: 048
     Dates: start: 20160128, end: 20160128
  17. 6?MERCAPTOPURINE [Suspect]
     Active Substance: MERCAPTOPURINE
     Route: 048
     Dates: start: 20160321, end: 20160430
  18. PREDNISONE. [Concomitant]
     Active Substance: PREDNISONE
     Indication: CROHN^S DISEASE
     Route: 048
     Dates: start: 20151105, end: 20160317
  19. PREDNISONE. [Concomitant]
     Active Substance: PREDNISONE
     Route: 048
     Dates: start: 20160524
  20. LIDOCAINE 1% [Concomitant]
     Active Substance: LIDOCAINE
     Indication: ANAL FISSURE
     Route: 061
     Dates: start: 20160429
  21. REMICADE [Concomitant]
     Active Substance: INFLIXIMAB
     Route: 040
     Dates: start: 20161028, end: 20161104

REACTIONS (1)
  - Serum sickness [Recovered/Resolved]

NARRATIVE: CASE EVENT DATE: 20161105
